FAERS Safety Report 6382214-7 (Version None)
Quarter: 2009Q3

REPORT INFORMATION
  Report Type: 
  Country: None (occurrence: None)
  Receive Date: 20090930
  Receipt Date: 20090918
  Transmission Date: 20100115
  Serious: Yes (Other)
  Sender: FDA-Public Use
  Company Number: US-BAYER-200914576BCC

PATIENT
  Age: 77 Year
  Sex: Male
  Weight: 77 kg

DRUGS (15)
  1. EXTRA STRENGTH BAYER BACK AND BODY PAIN ASPIRIN [Suspect]
     Indication: PAIN
     Dosage: TOTAL DAILY DOSE: 1000 MG  UNIT DOSE: 500 MG
     Route: 048
     Dates: start: 20090916
  2. EXTRA STRENGTH BAYER BACK AND BODY PAIN ASPIRIN [Suspect]
     Dosage: TOTAL DAILY DOSE: 2000 MG  UNIT DOSE: 500 MG
     Route: 048
     Dates: start: 20090917
  3. CARVEDILOL [Concomitant]
     Dosage: TOTAL DAILY DOSE: 25 MG  UNIT DOSE: 25 MG
     Route: 065
  4. SPIRONOLACTONE [Concomitant]
     Dosage: TOTAL DAILY DOSE: 25 MG  UNIT DOSE: 25 MG
     Route: 048
  5. FUROSEMIDE [Concomitant]
     Dosage: TOTAL DAILY DOSE: 40 MG  UNIT DOSE: 40 MG
     Route: 065
  6. GLIPIZIDE [Concomitant]
     Dosage: TOTAL DAILY DOSE: 20 MG  UNIT DOSE: 10 MG
     Route: 048
  7. METFORMIN HYDROCHLORIDE [Concomitant]
     Dosage: TOTAL DAILY DOSE: 1500 MG  UNIT DOSE: 500 MG
     Route: 048
  8. DULOXETINE [Concomitant]
     Dosage: TOTAL DAILY DOSE: 60 MG  UNIT DOSE: 60 MG
     Route: 065
  9. LISINOPRIL [Concomitant]
     Dosage: TOTAL DAILY DOSE: 20 MG  UNIT DOSE: 40 MG
     Route: 048
  10. ASPIRIN [Concomitant]
     Route: 048
  11. SIMVASTATIN [Concomitant]
     Dosage: TOTAL DAILY DOSE: 20 MG  UNIT DOSE: 40 MG
     Route: 048
  12. NASONEX [Concomitant]
     Dosage: ONCE OR TWICE A DAY
     Route: 045
  13. DIGOXIN [Concomitant]
     Dosage: TOTAL DAILY DOSE: 0.125 MG  UNIT DOSE: 0.125 MG
     Route: 048
  14. CLOTRIMAZOLE [Concomitant]
     Route: 061
  15. DULCOLAX [Concomitant]
     Route: 065
     Dates: start: 20090917

REACTIONS (3)
  - BLOOD GLUCOSE INCREASED [None]
  - DYSPEPSIA [None]
  - THROAT IRRITATION [None]
